FAERS Safety Report 4382406-2 (Version None)
Quarter: 2004Q2

REPORT INFORMATION
  Report Type: 
  Country: None (occurrence: None)
  Receive Date: 20040617
  Receipt Date: 20040603
  Transmission Date: 20050107
  Serious: Yes (Hospitalization, Other)
  Sender: FDA-Public Use
  Company Number: ERP04000219

PATIENT
  Age: 38 Year
  Sex: Female

DRUGS (4)
  1. ACTONEL [Suspect]
     Indication: BONE OPERATION
     Dosage: ORAL
     Route: 048
  2. REDOMEX (AMITRIPTYLINE HYDROCHLORIDE) [Concomitant]
  3. MYOLASTAN (TETRAZEPAM) [Concomitant]
  4. CALCITONIN [Concomitant]

REACTIONS (7)
  - COMA [None]
  - CONDITION AGGRAVATED [None]
  - DEPRESSION [None]
  - FEELING ABNORMAL [None]
  - IMPULSE-CONTROL DISORDER [None]
  - MENTAL DISORDER [None]
  - SUICIDE ATTEMPT [None]
